FAERS Safety Report 18694611 (Version 1)
Quarter: 2021Q1

REPORT INFORMATION
  Report Type: Spontaneous
  Country: GB (occurrence: GB)
  Receive Date: 20210104
  Receipt Date: 20210104
  Transmission Date: 20210419
  Serious: Yes (Other)
  Sender: FDA-Public Use
  Company Number: GB-MYLANLABS-2020M1105325

PATIENT
  Age: 58 Year
  Sex: Female

DRUGS (1)
  1. INDAPAMIDE. [Suspect]
     Active Substance: INDAPAMIDE
     Indication: HYPERTENSION
     Dosage: 2 NANOGRAM
     Route: 048
     Dates: start: 20200730, end: 20201104

REACTIONS (3)
  - Hypomagnesaemia [Recovered/Resolved]
  - Paraesthesia [Unknown]
  - Confusional state [Unknown]
